FAERS Safety Report 22622278 (Version 1)
Quarter: 2023Q2

REPORT INFORMATION
  Report Type: Spontaneous
  Country: US (occurrence: US)
  Receive Date: 20230620
  Receipt Date: 20230620
  Transmission Date: 20230721
  Serious: Yes (Hospitalization, Other)
  Sender: FDA-Public Use
  Company Number: US-JNJFOC-20230629540

PATIENT
  Age: 52 Year
  Sex: Female
  Weight: 94.3 kg

DRUGS (7)
  1. OPSUMIT [Suspect]
     Active Substance: MACITENTAN
     Indication: Product used for unknown indication
     Route: 048
  2. TREPROSTINIL [Suspect]
     Active Substance: TREPROSTINIL
     Indication: Pulmonary arterial hypertension
     Route: 048
  3. ORENITRAM [Suspect]
     Active Substance: TREPROSTINIL
     Indication: Pulmonary arterial hypertension
     Dosage: ORENITRAM 5 MG AND 0.25 MG AND THE CURRENT DOSE WAS REPORTED AS 5.5 MG, ORAL (PO), THREE TIMES DAILY
     Route: 048
     Dates: start: 20200108
  4. ORENITRAM [Suspect]
     Active Substance: TREPROSTINIL
     Route: 048
  5. ORENITRAM [Suspect]
     Active Substance: TREPROSTINIL
     Route: 048
  6. ORENITRAM [Suspect]
     Active Substance: TREPROSTINIL
     Route: 048
  7. ADCIRCA [Concomitant]
     Active Substance: TADALAFIL

REACTIONS (10)
  - Pulmonary arterial hypertension [Not Recovered/Not Resolved]
  - Loss of consciousness [Unknown]
  - Dyspnoea [Unknown]
  - Haemoglobin decreased [Unknown]
  - Hypertension [Not Recovered/Not Resolved]
  - Dizziness [Unknown]
  - Hypoacusis [Unknown]
  - Bronchitis [Unknown]
  - Chest discomfort [Unknown]
  - Rhinorrhoea [Not Recovered/Not Resolved]

NARRATIVE: CASE EVENT DATE: 20230313
